FAERS Safety Report 4881175-7 (Version None)
Quarter: 2006Q1

REPORT INFORMATION
  Report Type: 
  Country: None (occurrence: None)
  Receive Date: 20060111
  Receipt Date: 20060111
  Transmission Date: 20060701
  Serious: Yes (Life-Threatening, Hospitalization)
  Sender: FDA-Public Use
  Company Number: None

PATIENT
  Age: 45 Year
  Sex: Female
  Weight: 46.7205 kg

DRUGS (1)
  1. ACCOLATE [Suspect]
     Dosage: 20MG  TWICE DAILY  BY MOUTH
     Route: 048
     Dates: start: 20051129, end: 20051214

REACTIONS (4)
  - ABDOMINAL PAIN UPPER [None]
  - ASTHENIA [None]
  - FATIGUE [None]
  - NAUSEA [None]
